FAERS Safety Report 17982502 (Version 1)
Quarter: 2020Q3

REPORT INFORMATION
  Report Type: Spontaneous
  Country: US (occurrence: US)
  Receive Date: 20200703
  Receipt Date: 20200703
  Transmission Date: 20201103
  Serious: No
  Sender: FDA-Public Use
  Company Number: None

PATIENT
  Age: 68 Year
  Sex: Male

DRUGS (15)
  1. TACROLIMUS 0.5MG CAPSULES [Concomitant]
     Active Substance: TACROLIMUS
  2. TACROLIMUS OINTMENT [Concomitant]
     Active Substance: TACROLIMUS
  3. CRESEMBA [Concomitant]
     Active Substance: ISAVUCONAZONIUM SULFATE
  4. CENTRUM SILVER [Concomitant]
     Active Substance: MINERALS\VITAMINS
  5. CLOBETASOL SHAMPOO [Concomitant]
  6. JAKAFI [Suspect]
     Active Substance: RUXOLITINIB
     Indication: MYELOFIBROSIS
     Route: 048
  7. BACTRIM [Concomitant]
     Active Substance: SULFAMETHOXAZOLE\TRIMETHOPRIM
  8. VITAMIN D 1,000 UNITS [Concomitant]
  9. CLINDAMYCIN 1% TOP SOL [Concomitant]
  10. OCUVITE [Concomitant]
     Active Substance: VITAMINS
  11. VALGANCICLOVIR 450MG [Concomitant]
     Active Substance: VALACYCLOVIR HYDROCHLORIDE
  12. CICLOPIROL TOPICAL SOL [Concomitant]
  13. FLUOCINONIDE 0.05% SOL [Concomitant]
  14. LEVOTHYROXINE 0.112MCG [Concomitant]
  15. PROBIOTIC [Concomitant]
     Active Substance: PROBIOTICS NOS

REACTIONS (1)
  - Anaemia [None]

NARRATIVE: CASE EVENT DATE: 20200622
